FAERS Safety Report 7317246-5 (Version None)
Quarter: 2011Q1

REPORT INFORMATION
  Report Type: 
  Country: None (occurrence: None)
  Receive Date: 20110226
  Receipt Date: 20101011
  Transmission Date: 20110831
  Serious: Yes (Hospitalization)
  Sender: FDA-Public Use
  Company Number: US-ALLERGAN-1013063US

PATIENT
  Age: 31 Year
  Sex: Female

DRUGS (3)
  1. BOTOX COSMETIC [Suspect]
     Indication: SKIN WRINKLING
     Dosage: 44 UNITS, SINGLE
     Dates: start: 20100526, end: 20100526
  2. LEVOTHYROXINE SODIUM [Concomitant]
  3. YAZ [Concomitant]

REACTIONS (2)
  - CHEST PAIN [None]
  - MYOCARDIAL INFARCTION [None]
